FAERS Safety Report 6806165-6 (Version None)
Quarter: 2010Q2

REPORT INFORMATION
  Report Type: 
  Country: None (occurrence: None)
  Receive Date: 20100629
  Receipt Date: 20080107
  Transmission Date: 20101027
  Serious: No
  Sender: FDA-Public Use
  Company Number: US-PFIZER INC-2008002209

PATIENT
  Sex: Male

DRUGS (4)
  1. XANAX XR [Suspect]
     Indication: GENERALISED ANXIETY DISORDER
  2. AVAPRO [Concomitant]
  3. IMDUR [Concomitant]
  4. COREG [Concomitant]

REACTIONS (1)
  - NOCTURIA [None]
